FAERS Safety Report 21979799 (Version 1)
Quarter: 2023Q1

REPORT INFORMATION
  Report Type: Spontaneous
  Country: CN (occurrence: CN)
  Receive Date: 20230210
  Receipt Date: 20230210
  Transmission Date: 20230418
  Serious: Yes (Hospitalization, Other)
  Sender: FDA-Public Use
  Company Number: CN-ORGANON-O2302CHN000353

PATIENT
  Age: 32 Year
  Sex: Female
  Weight: 55 kg

DRUGS (14)
  1. FOLLITROPIN BETA [Suspect]
     Active Substance: FOLLITROPIN BETA
     Indication: Ovulation induction
     Dosage: 120 INTERNATIONAL UNIT, QD (STRENGTH: 600 INTERNATIONAL UNIT (IU)/0.72 MILLILITRE (ML))
     Route: 058
     Dates: start: 20221227, end: 20221231
  2. FOLLITROPIN BETA [Suspect]
     Active Substance: FOLLITROPIN BETA
  3. MENOTROPINS [Suspect]
     Active Substance: MENOTROPINS
     Indication: Ovulation induction
     Dosage: 150 INTERNATIONAL UNIT, QD
     Dates: start: 20230104, end: 20230106
  4. MENOTROPINS [Suspect]
     Active Substance: MENOTROPINS
     Dosage: 225 INTERNATIONAL UNIT, QD
     Dates: start: 20230107, end: 20230108
  5. CHORIONIC GONADOTROPHIN [Suspect]
     Active Substance: CHORIOGONADOTROPIN ALFA
     Indication: Ovulation induction
     Dosage: 10000 INTERNATIONAL UNIT, QD
     Dates: start: 20230108, end: 20230108
  6. FOLLITROPIN ALFA [Suspect]
     Active Substance: FOLLITROPIN ALFA
     Indication: Ovulation induction
     Dosage: 150 INTERNATIONAL UNIT, QD
     Dates: start: 20230104, end: 20230104
  7. FOLLITROPIN ALFA [Suspect]
     Active Substance: FOLLITROPIN ALFA
     Dosage: 75 INTERNATIONAL UNIT
     Dates: start: 20230107, end: 20230108
  8. LUTROPIN ALFA [Suspect]
     Active Substance: LUTROPIN ALFA
     Indication: Ovulation induction
     Dosage: 75 INTERNATIONAL UNIT, QD
     Route: 058
     Dates: start: 20230107, end: 20230107
  9. FOLLITROPIN BETA [Suspect]
     Active Substance: FOLLITROPIN BETA
     Indication: Ovulation induction
     Dosage: 125 INTERNATIONAL UNIT, QD
     Route: 058
     Dates: start: 20230101, end: 20230103
  10. SODIUM CHLORIDE [Concomitant]
     Active Substance: SODIUM CHLORIDE
     Indication: Vehicle solution use
     Dosage: 1 MILLILITER, QD
     Route: 030
     Dates: start: 20230104, end: 20230106
  11. SODIUM CHLORIDE [Concomitant]
     Active Substance: SODIUM CHLORIDE
     Dosage: 1 MILLILITER, QD
     Route: 030
     Dates: start: 20230107, end: 20230108
  12. SODIUM CHLORIDE [Concomitant]
     Active Substance: SODIUM CHLORIDE
     Dosage: 2 MILLILITER, QD
     Route: 030
     Dates: start: 20230108, end: 20230108
  13. STERILE WATER [Concomitant]
     Active Substance: WATER
     Indication: Vehicle solution use
     Dosage: 1 MILLILITER, QD
     Route: 058
     Dates: start: 20230104, end: 20230104
  14. STERILE WATER [Concomitant]
     Active Substance: WATER
     Dosage: 1 MILLILITER, QD
     Dates: start: 20230107, end: 20230108

REACTIONS (9)
  - Ovarian hyperstimulation syndrome [Recovering/Resolving]
  - Abdominal distension [Recovering/Resolving]
  - Abdominal pain [Recovering/Resolving]
  - Oliguria [Recovering/Resolving]
  - Chest discomfort [Recovering/Resolving]
  - Asthenia [Recovering/Resolving]
  - Transaminases increased [Recovering/Resolving]
  - Tension [Unknown]
  - Decreased appetite [Unknown]

NARRATIVE: CASE EVENT DATE: 20230110
